FAERS Safety Report 19147125 (Version 1)
Quarter: 2021Q2

REPORT INFORMATION
  Report Type: Spontaneous
  Country: US (occurrence: US)
  Receive Date: 20210416
  Receipt Date: 20210416
  Transmission Date: 20210717
  Serious: No
  Sender: FDA-Public Use
  Company Number: US-009507513-2104USA003462

PATIENT
  Age: 73 Year
  Sex: Male

DRUGS (3)
  1. ZOLINZA [Suspect]
     Active Substance: VORINOSTAT
     Indication: CUTANEOUS T-CELL LYMPHOMA
     Dosage: UNK
     Route: 048
  2. ALEMTUZUMAB [Concomitant]
     Active Substance: ALEMTUZUMAB
     Indication: CUTANEOUS T-CELL LYMPHOMA
     Dosage: UNK
  3. CLADRIBINE. [Concomitant]
     Active Substance: CLADRIBINE
     Indication: CUTANEOUS T-CELL LYMPHOMA
     Dosage: UNK

REACTIONS (1)
  - Off label use [Unknown]
